FAERS Safety Report 4749668-0 (Version None)
Quarter: 2005Q3

REPORT INFORMATION
  Report Type: 
  Country: None (occurrence: None)
  Receive Date: 20050822
  Receipt Date: 20050512
  Transmission Date: 20060218
  Serious: Yes (Hospitalization)
  Sender: FDA-Public Use
  Company Number: US-MERCK-0505USA01782

PATIENT
  Age: 58 Year
  Sex: Male
  Weight: 68 kg

DRUGS (6)
  1. VIOXX [Suspect]
     Indication: ARTHRITIS
     Route: 048
     Dates: start: 20010312, end: 20010101
  2. VIOXX [Suspect]
     Route: 048
     Dates: start: 20031104, end: 20031107
  3. ASPIRIN [Concomitant]
     Route: 065
     Dates: start: 19860101
  4. PLAVIX [Concomitant]
     Route: 065
     Dates: start: 20030101
  5. ZOCOR [Concomitant]
     Route: 065
     Dates: start: 20030101
  6. METHOCARBAMOL [Concomitant]
     Route: 065

REACTIONS (6)
  - ACUTE MYOCARDIAL INFARCTION [None]
  - ATRIAL FIBRILLATION [None]
  - CARDIAC FIBRILLATION [None]
  - CORONARY ARTERY DISEASE [None]
  - EJECTION FRACTION DECREASED [None]
  - THROMBOCYTOPENIA [None]
